FAERS Safety Report 7600897-8 (Version None)
Quarter: 2011Q2

REPORT INFORMATION
  Report Type: 
  Country: None (occurrence: None)
  Receive Date: 20110629
  Receipt Date: 20110615
  Transmission Date: 20111010
  Serious: Yes (Hospitalization, Other)
  Sender: FDA-Public Use
  Company Number: 2011MA007227

PATIENT
  Age: 21 Year
  Sex: Male

DRUGS (3)
  1. FEVERALL [Suspect]
  2. TRADITIONAL HERBAL TEA (NO PREF. NAME) [Suspect]
  3. AMOXICILLIN [Suspect]

REACTIONS (5)
  - ANAEMIA [None]
  - TACHYPNOEA [None]
  - CHEILITIS [None]
  - TOXIC EPIDERMAL NECROLYSIS [None]
  - HEART RATE INCREASED [None]
